FAERS Safety Report 23376689 (Version 1)
Quarter: 2024Q1

REPORT INFORMATION
  Report Type: Spontaneous
  Country: GB (occurrence: GB)
  Receive Date: 20240108
  Receipt Date: 20240108
  Transmission Date: 20240409
  Serious: Yes (Other)
  Sender: FDA-Public Use
  Company Number: GB-BRISTOL-MYERS SQUIBB COMPANY-2023-189572

PATIENT
  Sex: Female

DRUGS (6)
  1. KENALOG [Suspect]
     Active Substance: TRIAMCINOLONE ACETONIDE
     Indication: Rotator cuff syndrome
     Dosage: STRENGTH: 40MG INTRA-ARTICULAR / INTRAMUSCULAR INJECTION IN 1ML VIAL
     Dates: start: 20230609
  2. KENALOG [Suspect]
     Active Substance: TRIAMCINOLONE ACETONIDE
     Indication: Rotator cuff syndrome
  3. KENALOG [Suspect]
     Active Substance: TRIAMCINOLONE ACETONIDE
     Indication: Bursitis
  4. LIDOCAINE [Concomitant]
     Active Substance: LIDOCAINE
     Indication: Rotator cuff syndrome
     Dosage: 4ML 1%
     Dates: start: 20230609
  5. LIDOCAINE [Concomitant]
     Active Substance: LIDOCAINE
     Indication: Rotator cuff syndrome
  6. LIDOCAINE [Concomitant]
     Active Substance: LIDOCAINE
     Indication: Bursitis

REACTIONS (4)
  - Skin depigmentation [Unknown]
  - Arthralgia [Unknown]
  - Injection site atrophy [Unknown]
  - Lipodystrophy acquired [Unknown]

NARRATIVE: CASE EVENT DATE: 20230101
